FAERS Safety Report 5887986-3 (Version None)
Quarter: 2008Q3

REPORT INFORMATION
  Report Type: 
  Country: None (occurrence: None)
  Receive Date: 20080918
  Receipt Date: 20080917
  Transmission Date: 20090109
  Serious: Yes (Disabling)
  Sender: FDA-Public Use
  Company Number: D0057300A

PATIENT
  Age: 52 Year
  Sex: Female
  Weight: 103 kg

DRUGS (9)
  1. ELONTRIL [Suspect]
     Indication: DEPRESSION
     Dosage: 150MG PER DAY
     Route: 048
     Dates: start: 20080328, end: 20080505
  2. LITHIUM CARBONATE [Concomitant]
     Route: 065
  3. EUTHYROX [Concomitant]
     Indication: HYPOTHYROIDISM
     Dosage: 150UG IN THE MORNING
     Route: 048
  4. BELOC-ZOK [Concomitant]
     Indication: HYPERTENSION
     Dosage: 50MG TWICE PER DAY
     Route: 048
     Dates: start: 20080405
  5. PANTOZOL [Concomitant]
     Dosage: 40MG PER DAY
     Route: 048
  6. STILNOX [Concomitant]
     Indication: INITIAL INSOMNIA
     Dosage: 10MG AT NIGHT
     Route: 048
  7. FENISTIL [Concomitant]
     Dosage: 40DROP PER DAY
     Route: 048
  8. AERODUR [Concomitant]
     Dosage: 1PUFF TWICE PER DAY
     Route: 055
  9. PULMICORT-100 [Concomitant]
     Dosage: 200UG TWICE PER DAY
     Route: 055

REACTIONS (9)
  - ANGIOEDEMA [None]
  - DYSGEUSIA [None]
  - DYSPNOEA EXERTIONAL [None]
  - HAEMORRHAGE SUBCUTANEOUS [None]
  - HYPOAESTHESIA [None]
  - MUSCULAR WEAKNESS [None]
  - OEDEMA PERIPHERAL [None]
  - PARAESTHESIA [None]
  - STRIDOR [None]
